FAERS Safety Report 7110256-2 (Version None)
Quarter: 2010Q4

REPORT INFORMATION
  Report Type: 
  Country: None (occurrence: None)
  Receive Date: 20101117
  Receipt Date: 20101117
  Transmission Date: 20110411
  Serious: Yes (Hospitalization)
  Sender: FDA-Public Use
  Company Number: None

PATIENT
  Age: 77 Year
  Sex: Male
  Weight: 89.8122 kg

DRUGS (2)
  1. AVODART [Suspect]
     Indication: NOCTURIA
     Dosage: 1 PER DAY
     Dates: start: 20090930, end: 20100710
  2. AVODART [Suspect]
     Indication: NOCTURIA
     Dosage: 1 PER DAY
     Dates: start: 20070212

REACTIONS (1)
  - BENIGN BREAST NEOPLASM [None]
